FAERS Safety Report 5751277-1 (Version None)
Quarter: 2008Q2

REPORT INFORMATION
  Report Type: 
  Country: None (occurrence: None)
  Receive Date: 20080528
  Receipt Date: 20080520
  Transmission Date: 20081010
  Serious: Yes (Death, Hospitalization)
  Sender: FDA-Public Use
  Company Number: GB-PFIZER INC-2007032067

PATIENT
  Sex: Male
  Weight: 81 kg

DRUGS (1)
  1. SU-011,248 [Suspect]
     Indication: RENAL CELL CARCINOMA
     Route: 048
     Dates: start: 20070321, end: 20070417

REACTIONS (3)
  - DEATH [None]
  - DYSARTHRIA [None]
  - GAIT DISTURBANCE [None]
